FAERS Safety Report 8586300-2 (Version None)
Quarter: 2012Q3

REPORT INFORMATION
  Report Type: 
  Country: None (occurrence: None)
  Receive Date: 20120810
  Receipt Date: 20120619
  Transmission Date: 20120928
  Serious: No
  Sender: FDA-Public Use
  Company Number: US-ASTRAZENECA-2012SE41294

PATIENT
  Age: 66 Year
  Sex: Female
  Weight: 70.3 kg

DRUGS (2)
  1. CRESTOR [Suspect]
     Indication: BLOOD CHOLESTEROL INCREASED
     Route: 048
     Dates: start: 20120401
  2. LISINOPRIL [Suspect]
     Indication: BLOOD PRESSURE ABNORMAL
     Route: 048

REACTIONS (3)
  - PAIN IN EXTREMITY [None]
  - ABASIA [None]
  - HYPERTENSION [None]
